FAERS Safety Report 9786575 (Version 1)
Quarter: 2013Q4

REPORT INFORMATION
  Report Type: Spontaneous
  Country: US (occurrence: US)
  Receive Date: 20131227
  Receipt Date: 20131227
  Transmission Date: 20140711
  Serious: Yes (Other)
  Sender: FDA-Public Use
  Company Number: US-ABBVIE-13P-163-1181768-00

PATIENT
  Age: 64 Year
  Sex: Male
  Weight: 76.73 kg

DRUGS (5)
  1. HUMIRA [Suspect]
     Indication: CROHN^S DISEASE
     Dates: start: 201205, end: 201205
  2. HUMIRA [Suspect]
     Dates: start: 201205, end: 201205
  3. HUMIRA [Suspect]
     Dates: start: 201205
  4. NOVOLOG [Concomitant]
     Indication: DIABETES MELLITUS
  5. LANTUS [Concomitant]
     Indication: DIABETES MELLITUS

REACTIONS (6)
  - Gastrointestinal disorder [Recovered/Resolved]
  - Gastrointestinal inflammation [Unknown]
  - Crohn^s disease [Unknown]
  - Diarrhoea haemorrhagic [Recovered/Resolved]
  - Colon cancer [Recovered/Resolved]
  - Small intestine carcinoma [Recovered/Resolved]
